FAERS Safety Report 4377260-9 (Version None)
Quarter: 2004Q2

REPORT INFORMATION
  Report Type: 
  Country: None (occurrence: None)
  Receive Date: 20040614
  Receipt Date: 20040614
  Transmission Date: 20050107
  Serious: Yes (Life-Threatening, Hospitalization, Disabling)
  Sender: FDA-Public Use
  Company Number: None

PATIENT
  Age: 41 Year
  Sex: Female
  Weight: 83.9154 kg

DRUGS (4)
  1. DEPO-MEDROL [Suspect]
     Indication: INTERVERTEBRAL DISC PROTRUSION
     Dosage: GELFOAM SOAK ONCE INTRADISCAL
     Route: 024
     Dates: start: 20010614, end: 20010616
  2. DEPO-MEDROL [Suspect]
     Indication: NERVE ROOT LESION
     Dosage: GELFOAM SOAK ONCE INTRADISCAL
     Route: 024
     Dates: start: 20010614, end: 20010616
  3. DEPO-MEDROL [Suspect]
     Indication: INTERVERTEBRAL DISC PROTRUSION
     Dosage: GELFOAM SOAK ONCE INTRADISCAL
     Route: 024
     Dates: start: 20010916, end: 20010918
  4. DEPO-MEDROL [Suspect]
     Indication: NERVE ROOT LESION
     Dosage: GELFOAM SOAK ONCE INTRADISCAL
     Route: 024
     Dates: start: 20010916, end: 20010918

REACTIONS (1)
  - UNEVALUABLE EVENT [None]
